FAERS Safety Report 7472354-3 (Version None)
Quarter: 2011Q2

REPORT INFORMATION
  Report Type: 
  Country: None (occurrence: None)
  Receive Date: 20110511
  Receipt Date: 20110427
  Transmission Date: 20111010
  Serious: Yes (Other)
  Sender: FDA-Public Use
  Company Number: PHHY2011BR12599

PATIENT
  Sex: Male
  Weight: 70 kg

DRUGS (7)
  1. CLOZAPINE [Suspect]
     Dosage: 500 MG, QD
     Route: 048
  2. CLOZAPINE [Suspect]
     Dosage: 350 MG, QD
     Route: 048
  3. CLOZAPINE [Suspect]
     Dosage: 25 MG IN THE MORNING, 25 MG IN THE AFTERNOON AND 4 TABLETS OF 100 MG IN SINGLE DOSE AT NIGHT
     Dates: start: 20100901
  4. BIPERIDEN [Concomitant]
     Dosage: 2 MG, 1 TABLET A DAY
     Route: 048
  5. DIGOXIN [Concomitant]
     Indication: ARRHYTHMIA
     Dosage: 50 MG, 1 TABLET TWICE A DAY
  6. SLOW-K [Concomitant]
     Indication: BLOOD POTASSIUM
     Dosage: 1 TABLET A DAY
     Route: 048
  7. SELOZOK [Concomitant]
     Indication: HYPERTENSION
     Dosage: 50 MG, 1 TABLET IN THE MORNING AND 2 TABLETS IN SINGLE DOSE AT NIGH
     Route: 048

REACTIONS (7)
  - FEELING ABNORMAL [None]
  - WHITE BLOOD CELL DISORDER [None]
  - GASTROINTESTINAL INFECTION [None]
  - GAIT DISTURBANCE [None]
  - ELECTROCARDIOGRAM ABNORMAL [None]
  - ARRHYTHMIA [None]
  - ORTHOSTATIC HYPOTENSION [None]
